FAERS Safety Report 19828995 (Version 1)
Quarter: 2021Q3

REPORT INFORMATION
  Report Type: Spontaneous
  Country: DK (occurrence: DK)
  Receive Date: 20210914
  Receipt Date: 20210914
  Transmission Date: 20211014
  Serious: Yes (Hospitalization)
  Sender: FDA-Public Use
  Company Number: DK-MYLANLABS-2021M1061662

PATIENT
  Age: 30 Year
  Sex: Female

DRUGS (1)
  1. KLACID [Suspect]
     Active Substance: CLARITHROMYCIN
     Indication: INFECTION
     Dosage: 500 MILLIGRAM, QD
     Route: 048
     Dates: start: 20210222, end: 20210301

REACTIONS (2)
  - Sedation [Not Recovered/Not Resolved]
  - Hepatic function abnormal [Not Recovered/Not Resolved]

NARRATIVE: CASE EVENT DATE: 20210319
